FAERS Safety Report 16522067 (Version 2)
Quarter: 2019Q3

REPORT INFORMATION
  Report Type: Report from Study
  Country: US (occurrence: US)
  Receive Date: 20190703
  Receipt Date: 20190705
  Transmission Date: 20191004
  Serious: Yes (Hospitalization, Other)
  Sender: FDA-Public Use
  Company Number: US-GILEAD-2019-0416157

PATIENT
  Age: 29 Year
  Sex: Male

DRUGS (1)
  1. EMTRICITABINE/TENOFOVIR DISOPROXIL FUMARATE [Suspect]
     Active Substance: EMTRICITABINE\TENOFOVIR DISOPROXIL FUMARATE
     Indication: PRODUCT USED FOR UNKNOWN INDICATION
     Dosage: 500 MG, QD
     Route: 048
     Dates: start: 20180101

REACTIONS (4)
  - Intestinal perforation [Recovering/Resolving]
  - Escherichia infection [Unknown]
  - Nonalcoholic fatty liver disease [Unknown]
  - Shigella infection [Recovering/Resolving]

NARRATIVE: CASE EVENT DATE: 20190301
